FAERS Safety Report 18621809 (Version 1)
Quarter: 2020Q4

REPORT INFORMATION
  Report Type: Spontaneous
  Country: DK (occurrence: DK)
  Receive Date: 20201216
  Receipt Date: 20201216
  Transmission Date: 20210114
  Serious: Yes (Hospitalization, Other)
  Sender: FDA-Public Use
  Company Number: DK-VISTAPHARM, INC.-VER202011-002001

PATIENT
  Age: 48 Year
  Sex: Male

DRUGS (1)
  1. PREDNISOLONE. [Suspect]
     Active Substance: PREDNISOLONE
     Indication: SARCOIDOSIS
     Dosage: 25 MG/DAY

REACTIONS (2)
  - Whipple^s disease [Unknown]
  - Unmasking of previously unidentified disease [Unknown]
